FAERS Safety Report 5546948-6 (Version None)
Quarter: 2007Q4

REPORT INFORMATION
  Report Type: 
  Country: None (occurrence: None)
  Receive Date: 20071211
  Receipt Date: 20071205
  Transmission Date: 20080405
  Serious: Yes (Other)
  Sender: FDA-Public Use
  Company Number: BR-ASTRAZENECA-2007UW27851

PATIENT
  Age: 60 Year
  Sex: Female
  Weight: 54 kg

DRUGS (1)
  1. ATENOL [Suspect]
     Indication: HYPERTENSION
     Route: 048
     Dates: start: 19970101

REACTIONS (8)
  - ANXIETY [None]
  - CATARACT [None]
  - DIZZINESS [None]
  - INSOMNIA [None]
  - OEDEMA PERIPHERAL [None]
  - SURGERY [None]
  - TACHYCARDIA [None]
  - URINE OUTPUT DECREASED [None]
